FAERS Safety Report 24892655 (Version 1)
Quarter: 2025Q1

REPORT INFORMATION
  Report Type: Spontaneous
  Country: IT (occurrence: IT)
  Receive Date: 20250128
  Receipt Date: 20250128
  Transmission Date: 20250409
  Serious: Yes (Other)
  Sender: ROCHE
  Company Number: IT-ROCHE-10000184724

PATIENT
  Age: 54 Year

DRUGS (1)
  1. ALECENSA [Suspect]
     Active Substance: ALECTINIB HYDROCHLORIDE
     Indication: Lung adenocarcinoma
     Route: 048
     Dates: start: 20201217

REACTIONS (1)
  - Lung adenocarcinoma recurrent [Unknown]

NARRATIVE: CASE EVENT DATE: 20220530
